FAERS Safety Report 4337624-6 (Version None)
Quarter: 2004Q2

REPORT INFORMATION
  Report Type: 
  Country: None (occurrence: None)
  Receive Date: 20040413
  Receipt Date: 20031110
  Transmission Date: 20050107
  Serious: No
  Sender: FDA-Public Use
  Company Number: US-GLAXOSMITHKLINE-A0439004A

PATIENT
  Sex: Male

DRUGS (5)
  1. DEXEDRINE [Suspect]
     Route: 048
  2. RITONAVIR [Concomitant]
  3. INTERFERON [Concomitant]
  4. TENORMIN [Concomitant]
  5. RITALIN [Concomitant]

REACTIONS (1)
  - BLOOD PRESSURE INCREASED [None]
